FAERS Safety Report 25154030 (Version 1)
Quarter: 2025Q2

REPORT INFORMATION
  Report Type: Report from Study
  Country: US (occurrence: US)
  Receive Date: 20250403
  Receipt Date: 20250403
  Transmission Date: 20250716
  Serious: Yes (Other)
  Sender: ABBVIE
  Company Number: US-ABBVIE-6203454

PATIENT
  Sex: Male

DRUGS (1)
  1. IMBRUVICA [Suspect]
     Active Substance: IBRUTINIB
     Indication: B-cell small lymphocytic lymphoma
     Route: 048
     Dates: start: 2022

REACTIONS (6)
  - Spinal operation [Unknown]
  - Stomatitis [Unknown]
  - Lymphadenopathy [Recovering/Resolving]
  - Pain [Recovering/Resolving]
  - Rash macular [Unknown]
  - Asthenia [Unknown]
